FAERS Safety Report 5986389-0 (Version None)
Quarter: 2008Q4

REPORT INFORMATION
  Report Type: 
  Country: None (occurrence: None)
  Receive Date: 20081209
  Receipt Date: 20080408
  Transmission Date: 20090506
  Serious: No
  Sender: FDA-Public Use
  Company Number: US-AMGEN-KDL272070

PATIENT
  Sex: Female
  Weight: 58.6 kg

DRUGS (11)
  1. ENBREL [Suspect]
     Indication: RHEUMATOID ARTHRITIS
     Route: 058
     Dates: start: 20060228, end: 20071223
  2. ENBREL [Suspect]
     Indication: DRUG USE FOR UNKNOWN INDICATION
  3. PLAQUENIL [Concomitant]
  4. EFFEXOR [Concomitant]
  5. WELLBUTRIN [Concomitant]
  6. LIPITOR [Concomitant]
  7. GLUCOSAMINE [Concomitant]
  8. XANAX [Concomitant]
  9. FLEXERIL [Concomitant]
  10. COZAAR [Concomitant]
  11. HYZAAR [Concomitant]

REACTIONS (3)
  - ORAL PAIN [None]
  - OROPHARYNGEAL BLISTERING [None]
  - STOMATITIS [None]
